FAERS Safety Report 7198703-1 (Version None)
Quarter: 2010Q4

REPORT INFORMATION
  Report Type: 
  Country: None (occurrence: None)
  Receive Date: 20101227
  Receipt Date: 20101217
  Transmission Date: 20110411
  Serious: Yes (Other)
  Sender: FDA-Public Use
  Company Number: US-ABBOTT-10P-163-0617538-00

PATIENT
  Sex: Female
  Weight: 56.296 kg

DRUGS (23)
  1. HUMIRA [Suspect]
     Indication: COLITIS
     Dates: start: 20090421, end: 20091218
  2. LOVENOX [Suspect]
     Indication: FACTOR II DEFICIENCY
     Route: 050
     Dates: start: 20090515, end: 20091124
  3. LOVENOX [Suspect]
     Route: 048
     Dates: start: 20091125, end: 20091218
  4. PRENATAL VITAMINS [Concomitant]
     Indication: VITAMIN SUPPLEMENTATION
     Route: 048
     Dates: start: 20090421, end: 20091218
  5. DHA [Concomitant]
     Indication: PRODUCT USED FOR UNKNOWN INDICATION
     Route: 048
     Dates: start: 20090421, end: 20091218
  6. COFFEE [Concomitant]
     Indication: PRODUCT USED FOR UNKNOWN INDICATION
     Dosage: 1 SERVING
     Route: 048
     Dates: start: 20090421, end: 20091218
  7. PENTASA [Concomitant]
     Indication: COLITIS
     Route: 048
     Dates: start: 20090421, end: 20090903
  8. CANASA [Concomitant]
     Indication: COLITIS
     Route: 054
     Dates: start: 20090708, end: 20090903
  9. ASPIRIN [Concomitant]
     Indication: FACTOR II DEFICIENCY
     Route: 048
     Dates: start: 20090421, end: 20090720
  10. BENADRYL [Concomitant]
     Indication: HYPERSENSITIVITY
     Dosage: 3-4X TOTAL
     Route: 048
     Dates: start: 20090601, end: 20090710
  11. BENADRYL [Concomitant]
     Dosage: 4 TOTAL
     Route: 048
     Dates: start: 20091024, end: 20091202
  12. ROWASA [Concomitant]
     Indication: COLITIS
     Route: 061
     Dates: start: 20090904, end: 20091218
  13. APRISO [Concomitant]
     Indication: PRODUCT USED FOR UNKNOWN INDICATION
     Route: 048
     Dates: start: 20090903, end: 20091218
  14. FLU VACCINE (NO PRESERVATIVE) [Concomitant]
     Indication: PROPHYLAXIS
     Route: 050
     Dates: start: 20090812, end: 20090812
  15. FLU VACCINE (NO PRESERVATIVE) [Concomitant]
     Indication: INFLUENZA
  16. CLARITIN [Concomitant]
     Indication: HYPERSENSITIVITY
     Dosage: 3 TOTAL
     Route: 048
     Dates: start: 20090827, end: 20090910
  17. CLARITIN [Concomitant]
     Route: 048
     Dates: start: 20090910, end: 20091218
  18. ZANTAC [Concomitant]
     Indication: REFLUX GASTRITIS
     Route: 048
     Dates: start: 20080908, end: 20090909
  19. ADVAIR [Concomitant]
     Indication: UPPER RESPIRATORY TRACT INFECTION
     Route: 048
     Dates: start: 20091124, end: 20091218
  20. H1N1 2009 INFLUENZA VACCINE NOS [Concomitant]
     Indication: PROPHYLAXIS
     Route: 055
     Dates: start: 20091015, end: 20091015
  21. H1N1 2009 INFLUENZA VACCINE NOS [Concomitant]
     Indication: H1N1 INFLUENZA
  22. DOCUSATE SODIUM [Concomitant]
     Indication: CONSTIPATION
     Route: 048
     Dates: start: 20090616, end: 20090713
  23. ZYRTEC [Concomitant]
     Indication: MULTIPLE ALLERGIES
     Dosage: 5 TOTAL DOSES
     Route: 048
     Dates: start: 20090424

REACTIONS (8)
  - ANTEPARTUM HAEMORRHAGE [None]
  - BRONCHITIS [None]
  - DRUG EXPOSURE DURING PREGNANCY [None]
  - FALL [None]
  - PREMATURE SEPARATION OF PLACENTA [None]
  - SKELETAL INJURY [None]
  - UPPER RESPIRATORY TRACT INFECTION [None]
  - VIRAL INFECTION [None]
